FAERS Safety Report 9274517 (Version 4)
Quarter: 2016Q1

REPORT INFORMATION
  Report Type: Report from Study
  Country: DE (occurrence: DE)
  Receive Date: 20130507
  Receipt Date: 20160211
  Transmission Date: 20160526
  Serious: Yes (Death, Hospitalization, Disabling)
  Sender: FDA-Public Use
  Company Number: DE-ROCHE-1221477

PATIENT
  Age: 71 Year
  Sex: Male
  Weight: 90 kg

DRUGS (5)
  1. KALINOR [Concomitant]
     Active Substance: POTASSIUM CITRATE
     Route: 065
  2. RANIBIZUMAB [Suspect]
     Active Substance: RANIBIZUMAB
     Indication: AGE-RELATED MACULAR DEGENERATION
     Dosage: LAST DOSE:25/MAR/2013
     Route: 050
     Dates: start: 20121115
  3. COSOPT [Concomitant]
     Active Substance: DORZOLAMIDE HYDROCHLORIDE\TIMOLOL MALEATE
     Route: 065
  4. GLAUPAX [Concomitant]
     Active Substance: ACETAZOLAMIDE
  5. ISOPTO MAX [Concomitant]

REACTIONS (4)
  - Intraocular pressure increased [Unknown]
  - Bronchial carcinoma [Fatal]
  - Retinal haemorrhage [Not Recovered/Not Resolved]
  - Drug ineffective [Unknown]

NARRATIVE: CASE EVENT DATE: 20130328
